FAERS Safety Report 15613734 (Version 1)
Quarter: 2018Q4

REPORT INFORMATION
  Report Type: Spontaneous
  Country: HU (occurrence: HU)
  Receive Date: 20181113
  Receipt Date: 20181113
  Transmission Date: 20190205
  Serious: Yes (Other)
  Sender: FDA-Public Use
  Company Number: HU-MYLANLABS-2018M1085692

PATIENT
  Sex: Female

DRUGS (1)
  1. CISPLATIN. [Suspect]
     Active Substance: CISPLATIN
     Indication: HEPATOBLASTOMA
     Dosage: 4 CYCLES PRE-OPERATIVE AND 2 CYCLES POST-OPERATIVE, CYCLE

REACTIONS (3)
  - Off label use [Unknown]
  - Enzyme level increased [Recovered/Resolved]
  - Foetal exposure during pregnancy [Unknown]
